FAERS Safety Report 4986448-5 (Version None)
Quarter: 2006Q2

REPORT INFORMATION
  Report Type: 
  Country: None (occurrence: None)
  Receive Date: 20060424
  Receipt Date: 20060413
  Transmission Date: 20061013
  Serious: Yes (Hospitalization)
  Sender: FDA-Public Use
  Company Number: 200610504GDS

PATIENT
  Age: 44 Year
  Sex: Female
  Weight: 99.7913 kg

DRUGS (1)
  1. CIPROFLOXACIN HCL [Suspect]
     Dosage: 1000 MG, TOTAL DAILY, ORAL
     Route: 048
     Dates: start: 19931207, end: 19931209

REACTIONS (4)
  - DRUG HYPERSENSITIVITY [None]
  - FACE OEDEMA [None]
  - PERIORBITAL OEDEMA [None]
  - SUBCUTANEOUS ABSCESS [None]
